FAERS Safety Report 6772918-6 (Version None)
Quarter: 2010Q2

REPORT INFORMATION
  Report Type: 
  Country: None (occurrence: None)
  Receive Date: 20100616
  Receipt Date: 20100609
  Transmission Date: 20101027
  Serious: Yes (Death)
  Sender: FDA-Public Use
  Company Number: CA-PFIZER INC-2010072856

PATIENT

DRUGS (1)
  1. CELEBREX [Suspect]

REACTIONS (1)
  - DEATH [None]
